FAERS Safety Report 7941383-5 (Version None)
Quarter: 2011Q4

REPORT INFORMATION
  Report Type: 
  Country: None (occurrence: None)
  Receive Date: 20111122
  Receipt Date: 20110209
  Transmission Date: 20120403
  Serious: Yes (Hospitalization)
  Sender: FDA-Public Use
  Company Number: USA/USA/11/0017417

PATIENT
  Age: 62 Year
  Sex: Female

DRUGS (1)
  1. IBUPROFEN [Suspect]
     Indication: PLANTAR FASCIITIS
     Dosage: 600 MG, A FEW TIMES WEEKLY

REACTIONS (5)
  - GASTROINTESTINAL DISORDER [None]
  - RECTAL HAEMORRHAGE [None]
  - GASTROINTESTINAL NEOPLASM [None]
  - ABDOMINAL PAIN [None]
  - COLONIC POLYP [None]
